FAERS Safety Report 7061444-5 (Version None)
Quarter: 2010Q4

REPORT INFORMATION
  Report Type: 
  Country: None (occurrence: None)
  Receive Date: 20101026
  Receipt Date: 20101013
  Transmission Date: 20110411
  Serious: Yes (Death, Life-Threatening, Hospitalization, Disabling)
  Sender: FDA-Public Use
  Company Number: US-ACTELION-A-NJ2009-26357

PATIENT
  Sex: Male

DRUGS (1)
  1. BOSENTAN TABLET UNKNOWN US MG [Suspect]
     Indication: PULMONARY ARTERIAL HYPERTENSION
     Dosage: UNK
     Route: 048
     Dates: start: 20030502, end: 20100604

REACTIONS (8)
  - CARDIOMYOPATHY [None]
  - DYSPNOEA [None]
  - IMPAIRED HEALING [None]
  - LEG AMPUTATION [None]
  - PERIPHERAL VASCULAR DISORDER [None]
  - SKIN GRAFT [None]
  - SKIN ULCER [None]
  - TOE AMPUTATION [None]
